FAERS Safety Report 10958124 (Version 4)
Quarter: 2016Q3

REPORT INFORMATION
  Report Type: Spontaneous
  Country: FR (occurrence: FR)
  Receive Date: 20150326
  Receipt Date: 20160705
  Transmission Date: 20161109
  Serious: Yes (Hospitalization, Other)
  Sender: FDA-Public Use
  Company Number: FR-GILEAD-2014-0129808

PATIENT
  Age: 78 Year
  Sex: Female
  Weight: 70 kg

DRUGS (21)
  1. METFORMINE [Concomitant]
     Active Substance: METFORMIN HYDROCHLORIDE
  2. ELTROMBOPAG [Concomitant]
     Active Substance: ELTROMBOPAG
  3. ZELITREX [Concomitant]
     Active Substance: VALACYCLOVIR HYDROCHLORIDE
     Dosage: UNK
     Route: 065
     Dates: start: 201410
  4. RITUXIMAB [Suspect]
     Active Substance: RITUXIMAB
     Dosage: 500 MG/M2, Q 15 DAYS X 2 MONTHS
     Route: 042
     Dates: start: 201410, end: 201504
  5. FORMOTEROL FUMARATE [Concomitant]
     Active Substance: FORMOTEROL FUMARATE
  6. REVOLADE [Concomitant]
     Active Substance: ELTROMBOPAG
     Dosage: UNK
     Route: 065
     Dates: start: 201410
  7. RITUXIMAB [Suspect]
     Active Substance: RITUXIMAB
     Dosage: 75 MG, UNK
     Route: 042
  8. BACTRIM [Suspect]
     Active Substance: SULFAMETHOXAZOLE\TRIMETHOPRIM
     Indication: PRODUCT USED FOR UNKNOWN INDICATION
     Dosage: UNK
     Route: 065
     Dates: start: 201410, end: 201605
  9. IRBESARTAN. [Concomitant]
     Active Substance: IRBESARTAN
  10. RITUXIMAB [Suspect]
     Active Substance: RITUXIMAB
     Indication: CHRONIC LYMPHOCYTIC LEUKAEMIA RECURRENT
     Dosage: 50 MG, Q 4WEEKS
     Route: 042
  11. RITUXIMAB [Suspect]
     Active Substance: RITUXIMAB
     Dosage: 375 MG/M2, ONCE
     Route: 042
     Dates: start: 201410, end: 201410
  12. MONTELUKAST [Concomitant]
     Active Substance: MONTELUKAST SODIUM
  13. OMEPRAZOLE. [Concomitant]
     Active Substance: OMEPRAZOLE
  14. FOLINORAL [Concomitant]
     Active Substance: LEUCOVORIN CALCIUM
     Dosage: UNK
     Route: 065
     Dates: start: 201410
  15. ZYDELIG [Suspect]
     Active Substance: IDELALISIB
     Dosage: 100 MG, BID
     Route: 048
     Dates: start: 20150108, end: 20160516
  16. ALLOPURINOL. [Concomitant]
     Active Substance: ALLOPURINOL
  17. ZYDELIG [Suspect]
     Active Substance: IDELALISIB
     Dosage: UNK
     Route: 048
     Dates: start: 20160613
  18. RITUXIMAB [Suspect]
     Active Substance: RITUXIMAB
     Dosage: 50 MG, FOR 4 WEEKS
     Route: 042
  19. ZYDELIG [Suspect]
     Active Substance: IDELALISIB
     Indication: CHRONIC LYMPHOCYTIC LEUKAEMIA RECURRENT
     Dosage: 150 MG, BID
     Route: 048
     Dates: start: 20141024, end: 20141219
  20. RITUXIMAB [Suspect]
     Active Substance: RITUXIMAB
     Dosage: 500 MG, ONCE A MONTH X 3 MONTHS
     Route: 042
  21. GLICLAZIDE [Concomitant]
     Active Substance: GLICLAZIDE

REACTIONS (8)
  - Pyrexia [Unknown]
  - Asthenia [Unknown]
  - Lung disorder [Not Recovered/Not Resolved]
  - Lung infection [Recovering/Resolving]
  - Pancytopenia [Recovering/Resolving]
  - Iron deficiency anaemia [Unknown]
  - Diarrhoea [Recovered/Resolved]
  - Acute kidney injury [Unknown]

NARRATIVE: CASE EVENT DATE: 2014
